FAERS Safety Report 8211615-7 (Version None)
Quarter: 2012Q1

REPORT INFORMATION
  Report Type: 
  Country: None (occurrence: None)
  Receive Date: 20120315
  Receipt Date: 20120305
  Transmission Date: 20120608
  Serious: Yes (Hospitalization, Other)
  Sender: FDA-Public Use
  Company Number: SI-MPIJNJ-2012-01646

PATIENT

DRUGS (9)
  1. DEXAMETHASONE [Concomitant]
     Dosage: UNK
     Route: 048
     Dates: start: 20110607, end: 20111129
  2. VELCADE [Suspect]
     Indication: MULTIPLE MYELOMA
     Dosage: 0.8 MG, CYCLIC
     Route: 058
     Dates: start: 20110607, end: 20111129
  3. PANTOPRAZOLE [Concomitant]
     Route: 048
  4. ALKERAN [Concomitant]
     Dosage: UNK
     Route: 048
     Dates: start: 20110607, end: 20111129
  5. BISOPROLOL FUMARATE [Concomitant]
     Route: 048
  6. LACIPIL [Concomitant]
     Route: 048
  7. ASPIRIN [Concomitant]
     Dosage: UNK
     Route: 048
  8. ARANESP [Concomitant]
     Route: 051
  9. ZOMETA [Concomitant]
     Route: 042

REACTIONS (2)
  - OFF LABEL USE [None]
  - MYELODYSPLASTIC SYNDROME [None]
